FAERS Safety Report 18352665 (Version 2)
Quarter: 2021Q1

REPORT INFORMATION
  Report Type: Report from Study
  Country: GB (occurrence: GB)
  Receive Date: 20201007
  Receipt Date: 20210127
  Transmission Date: 20210419
  Serious: Yes (Other)
  Sender: FDA-Public Use
  Company Number: GB-GLAXOSMITHKLINE-GB2020EME198538

PATIENT
  Age: 53 Year
  Sex: Male

DRUGS (2)
  1. NUCALA [Suspect]
     Active Substance: MEPOLIZUMAB
     Indication: ASTHMA
     Dosage: 100 MG, Z (EVERY 4 WEEKS)
     Dates: start: 202006
  2. MEPOLIZUMAB [Suspect]
     Active Substance: MEPOLIZUMAB
     Indication: ASTHMA
     Dosage: 100 MG, Z, EVERY 4 WEEK
     Dates: start: 202006

REACTIONS (4)
  - Cerebrovascular accident [Unknown]
  - Product dose omission issue [Unknown]
  - Memory impairment [Unknown]
  - Infection [Unknown]

NARRATIVE: CASE EVENT DATE: 202010
